FAERS Safety Report 6113153-4 (Version None)
Quarter: 2009Q1

REPORT INFORMATION
  Report Type: 
  Country: None (occurrence: None)
  Receive Date: 20090312
  Receipt Date: 20090305
  Transmission Date: 20090719
  Serious: Yes (Death)
  Sender: FDA-Public Use
  Company Number: US-ELI_LILLY_AND_COMPANY-US200812005394

PATIENT
  Sex: Male

DRUGS (21)
  1. HUMULIN 70/30 [Suspect]
     Dosage: 20 U, DAILY (1/D)
  2. HUMULIN 70/30 [Suspect]
     Dosage: UNK, UNKNOWN
  3. NORVASC [Concomitant]
     Dosage: 5 MG, DAILY (1/D)
  4. ALBUTEROL [Concomitant]
     Dosage: UNK, 3/D
  5. ACIPHEX [Concomitant]
     Dosage: 20 MG, 2/D
  6. FOLIC ACID [Concomitant]
  7. FLOMAX [Concomitant]
     Dosage: 0.4 MG, DAILY (1/D)
  8. COUMADIN [Concomitant]
     Dosage: 10 MG, 2/W
  9. COUMADIN [Concomitant]
     Dosage: 7.5 MG, 5/W
  10. SYNTHROID [Concomitant]
     Dosage: 1.75 MG, DAILY (1/D)
  11. FISH OIL [Concomitant]
     Dosage: 1200 MG, 2/D
  12. ALDACTONE [Concomitant]
     Dosage: 12.5 MG, DAILY (1/D)
  13. VITAMIN B-12 [Concomitant]
     Dosage: UNK, DAILY (1/D)
  14. ICAPS [Concomitant]
     Dosage: UNK, 2/D
  15. TOPROL-XL [Concomitant]
     Dosage: 50 MG, 2/D
  16. BYETTA [Concomitant]
     Dosage: 10 U, 2/D
  17. AMITIZA [Concomitant]
     Dosage: 24 MG, 2/D
  18. MULTI-VITAMIN [Concomitant]
  19. COMBIVENT [Concomitant]
     Dosage: UNK, AS NEEDED
  20. OXYGEN [Concomitant]
     Dosage: 6 LITER, EACH EVENING
  21. COSOPT [Concomitant]
     Dosage: UNK, 2/D

REACTIONS (2)
  - CARDIAC FAILURE CONGESTIVE [None]
  - DEATH [None]
